FAERS Safety Report 4833996-4 (Version None)
Quarter: 2005Q4

REPORT INFORMATION
  Report Type: 
  Country: None (occurrence: None)
  Receive Date: 20051122
  Receipt Date: 20051111
  Transmission Date: 20060501
  Serious: Yes (Hospitalization)
  Sender: FDA-Public Use
  Company Number: DE-AMGEN-UK157590

PATIENT
  Sex: Female

DRUGS (5)
  1. NEULASTA [Suspect]
     Indication: CHEMOTHERAPY
     Route: 058
  2. CIPROFLOXACIN [Suspect]
  3. DOXORUBICIN HCL [Suspect]
  4. CYCLOPHOSPHAMIDE [Suspect]
  5. DOCETAXEL [Suspect]

REACTIONS (3)
  - DIARRHOEA [None]
  - LEUKOPENIA [None]
  - PERFORMANCE STATUS DECREASED [None]
